FAERS Safety Report 11786255 (Version 1)
Quarter: 2015Q4

REPORT INFORMATION
  Report Type: Spontaneous
  Country: US (occurrence: None)
  Receive Date: 20151125
  Receipt Date: 20151125
  Transmission Date: 20160305
  Serious: No
  Sender: FDA-Public Use
  Company Number: None

PATIENT
  Age: 58 Year
  Sex: Female

DRUGS (1)
  1. IBRANCE [Suspect]
     Active Substance: PALBOCICLIB
     Indication: MALAISE
     Dosage: 125MG?DAILY FOR 21 DAYS?PO
     Route: 048
     Dates: start: 20150827

REACTIONS (3)
  - Erythema [None]
  - Skin burning sensation [None]
  - Onychomadesis [None]

NARRATIVE: CASE EVENT DATE: 20150830
